FAERS Safety Report 8426190-1 (Version None)
Quarter: 2012Q2

REPORT INFORMATION
  Report Type: 
  Country: None (occurrence: None)
  Receive Date: 20120323
  Receipt Date: 20110307
  Transmission Date: 20120825
  Serious: Yes (Other)
  Sender: FDA-Public Use
  Company Number: 163-21880-11021617

PATIENT
  Age: 81 Year
  Sex: Female
  Weight: 65.77 kg

DRUGS (14)
  1. IRON [Concomitant]
  2. NORVASC [Concomitant]
  3. COUMADIN [Concomitant]
  4. CALCIUM + D3 (CALCIUM D3 ^STADA^) [Concomitant]
  5. LENALIDOMIDE [Suspect]
     Indication: MULTIPLE MYELOMA
     Dosage: 20 MG, DAILY, PO : 10 MG, DAILY, PO : 5 MG, DAILY, PO
     Route: 048
     Dates: start: 20101101
  6. LENALIDOMIDE [Suspect]
     Indication: MULTIPLE MYELOMA
     Dosage: 20 MG, DAILY, PO : 10 MG, DAILY, PO : 5 MG, DAILY, PO
     Route: 048
     Dates: start: 20100923, end: 20110201
  7. LENALIDOMIDE [Suspect]
     Indication: MULTIPLE MYELOMA
     Dosage: 20 MG, DAILY, PO : 10 MG, DAILY, PO : 5 MG, DAILY, PO
     Route: 048
     Dates: start: 20110209
  8. DEXAMETHASONE [Concomitant]
  9. ZOCOR [Concomitant]
  10. VASOTEC [Concomitant]
  11. BYSTOLIC [Concomitant]
  12. ASPIRIN [Concomitant]
  13. LASIX [Concomitant]
  14. FOLBIC (HEPAGRISEVIT FORTE-N TABLET) [Concomitant]

REACTIONS (1)
  - PLATELET COUNT DECREASED [None]
